FAERS Safety Report 5479248-3 (Version None)
Quarter: 2007Q4

REPORT INFORMATION
  Report Type: 
  Country: None (occurrence: None)
  Receive Date: 20071008
  Receipt Date: 20071005
  Transmission Date: 20080405
  Serious: Yes (Hospitalization)
  Sender: FDA-Public Use
  Company Number: US-JNJFOC-20070803362

PATIENT
  Age: 48 Year
  Sex: Female

DRUGS (7)
  1. TOPAMAX [Suspect]
     Dosage: 50 MG AT BEDTIME; 25 MG AM
     Route: 048
  2. TOPAMAX [Suspect]
     Route: 048
  3. TOPAMAX [Suspect]
     Indication: MIGRAINE PROPHYLAXIS
     Route: 048
  4. LORTAB [Concomitant]
     Route: 048
  5. NEURONTIN [Concomitant]
     Route: 048
  6. RELPAX [Concomitant]
     Indication: MIGRAINE
  7. DIAZEPAM [Concomitant]
     Indication: ANXIETY

REACTIONS (7)
  - CONFUSIONAL STATE [None]
  - DELIRIUM [None]
  - DISORIENTATION [None]
  - INCOHERENT [None]
  - MENINGITIS [None]
  - PERSONALITY CHANGE [None]
  - PSYCHOTIC DISORDER [None]
